FAERS Safety Report 5957101-6 (Version None)
Quarter: 2008Q4

REPORT INFORMATION
  Report Type: 
  Country: None (occurrence: None)
  Receive Date: 20081118
  Receipt Date: 20081112
  Transmission Date: 20090506
  Serious: Yes (Other)
  Sender: FDA-Public Use
  Company Number: PHHY2008BR28128

PATIENT
  Age: 61 Year
  Sex: Female
  Weight: 95 kg

DRUGS (1)
  1. VOLTAREN [Suspect]
     Indication: BACK PAIN
     Dosage: 75MG/3ML 5 AMPOULE
     Route: 030
     Dates: start: 20080918

REACTIONS (9)
  - ABSCESS [None]
  - CRYING [None]
  - DECREASED APPETITE [None]
  - HAEMATOMA [None]
  - INJECTION SITE ANAESTHESIA [None]
  - INJECTION SITE PAIN [None]
  - SCREAMING [None]
  - WEIGHT DECREASED [None]
  - WOUND [None]
